FAERS Safety Report 15861657 (Version 2)
Quarter: 2019Q1

REPORT INFORMATION
  Report Type: Spontaneous
  Country: US (occurrence: US)
  Receive Date: 20190124
  Receipt Date: 20190223
  Transmission Date: 20190417
  Serious: No
  Sender: FDA-Public Use
  Company Number: US-JNJFOC-20190107808

PATIENT
  Sex: Female
  Weight: 102.06 kg

DRUGS (4)
  1. GLIMEPIRIDE. [Concomitant]
     Active Substance: GLIMEPIRIDE
     Route: 065
  2. INVOKANA [Suspect]
     Active Substance: CANAGLIFLOZIN
     Indication: TYPE 2 DIABETES MELLITUS
     Route: 048
  3. LISINOPRIL. [Concomitant]
     Active Substance: LISINOPRIL
     Route: 065
  4. SIMVASTATIN. [Concomitant]
     Active Substance: SIMVASTATIN
     Route: 065

REACTIONS (9)
  - Inadequate diet [Unknown]
  - Nausea [Not Recovered/Not Resolved]
  - Vertigo [Unknown]
  - Decreased appetite [Unknown]
  - Headache [Not Recovered/Not Resolved]
  - Flatulence [Not Recovered/Not Resolved]
  - Retching [Not Recovered/Not Resolved]
  - Drug ineffective [Unknown]
  - Blood glucose fluctuation [Unknown]
